FAERS Safety Report 6272346-6 (Version None)
Quarter: 2009Q3

REPORT INFORMATION
  Report Type: 
  Country: None (occurrence: None)
  Receive Date: 20090715
  Receipt Date: 20090702
  Transmission Date: 20100115
  Serious: Yes (Hospitalization)
  Sender: FDA-Public Use
  Company Number: CIP09001786

PATIENT
  Age: 66 Year
  Sex: Male

DRUGS (1)
  1. ASACOL [Suspect]
     Dosage: 800 MG THREE TIMES DAILY, ORAL
     Route: 048
     Dates: start: 20090101, end: 20090624

REACTIONS (2)
  - PANCYTOPENIA [None]
  - RESPIRATORY FAILURE [None]
